FAERS Safety Report 21687146 (Version 1)
Quarter: 2022Q4

REPORT INFORMATION
  Report Type: Other
  Country: US (occurrence: None)
  Receive Date: 20221206
  Receipt Date: 20221206
  Transmission Date: 20230113
  Serious: Yes (Death)
  Sender: FDA-Public Use
  Company Number: US-ROCHE-3220921

PATIENT
  Age: 59 Year
  Sex: Female

DRUGS (1)
  1. OCREVUS [Suspect]
     Active Substance: OCRELIZUMAB
     Indication: Multiple sclerosis
     Dosage: INFUSE 300MG W 0, REPEAT IN 2 WEEKS, INFUSE 600MG EVERY 6 MONTHS, DOT: 22/MAR/2021, 09/APR/2021, 23/
     Route: 042

REACTIONS (1)
  - Death [Fatal]
